FAERS Safety Report 4324332-0 (Version None)
Quarter: 2004Q1

REPORT INFORMATION
  Report Type: 
  Country: None (occurrence: None)
  Receive Date: 20040326
  Receipt Date: 20040129
  Transmission Date: 20041129
  Serious: Yes (Hospitalization)
  Sender: FDA-Public Use
  Company Number: US-GLAXOSMITHKLINE-A0495764A

PATIENT
  Age: 76 Year
  Sex: Female

DRUGS (6)
  1. ADVAIR DISKUS 100/50 [Suspect]
     Indication: ASTHMA
     Dosage: 1PUFF TWICE PER DAY
     Route: 055
     Dates: start: 20030101
  2. SINGULAIR [Concomitant]
  3. PHENOBARBITAL TAB [Concomitant]
  4. EVISTA [Concomitant]
  5. MULTIVITAMIN [Concomitant]
  6. EYE DROPS [Concomitant]
     Indication: GLAUCOMA

REACTIONS (2)
  - BRONCHITIS [None]
  - PNEUMONIA [None]
